FAERS Safety Report 10932662 (Version 1)
Quarter: 2015Q1

REPORT INFORMATION
  Report Type: Spontaneous
  Country: US (occurrence: None)
  Receive Date: 20150319
  Receipt Date: 20150319
  Transmission Date: 20150721
  Serious: Yes (Hospitalization)
  Sender: FDA-Public Use
  Company Number: None

PATIENT
  Age: 77 Year
  Sex: Male
  Weight: 90.9 kg

DRUGS (1)
  1. GLYBURIDE/METFORMIN [Suspect]
     Active Substance: GLYBURIDE\METFORMIN
     Indication: DIABETES MELLITUS
     Route: 048
     Dates: start: 20101004, end: 20130110

REACTIONS (4)
  - Fall [None]
  - Subdural haematoma [None]
  - Head injury [None]
  - Hypoglycaemia [None]

NARRATIVE: CASE EVENT DATE: 20130107
